FAERS Safety Report 10802845 (Version 2)
Quarter: 2015Q1

REPORT INFORMATION
  Report Type: Spontaneous
  Country: US (occurrence: US)
  Receive Date: 20150217
  Receipt Date: 20150220
  Transmission Date: 20150721
  Serious: No
  Sender: FDA-Public Use
  Company Number: US-PFIZER INC-2015056453

PATIENT
  Sex: Female

DRUGS (1)
  1. TIKOSYN [Suspect]
     Active Substance: DOFETILIDE
     Dosage: 500 ?G, 2X/DAY

REACTIONS (5)
  - Feeling abnormal [Unknown]
  - Ear disorder [Unknown]
  - Nasopharyngitis [Unknown]
  - Drug ineffective [Unknown]
  - Respiratory tract congestion [Unknown]
